FAERS Safety Report 14227219 (Version 1)
Quarter: 2017Q4

REPORT INFORMATION
  Report Type: Spontaneous
  Country: US (occurrence: US)
  Receive Date: 20171127
  Receipt Date: 20171127
  Transmission Date: 20180321
  Serious: Yes (Hospitalization)
  Sender: FDA-Public Use
  Company Number: US-LEXICON PHARMACEUTICALS, INC-17-1606-01194

PATIENT
  Age: 68 Year
  Sex: Female

DRUGS (1)
  1. TELOTRISTAT ETHYL [Suspect]
     Active Substance: TELOTRISTAT ETHYL
     Indication: CARCINOID TUMOUR
     Route: 048
     Dates: start: 20171005

REACTIONS (2)
  - Rectal prolapse repair [Not Recovered/Not Resolved]
  - Arteriovenous fistula occlusion [Not Recovered/Not Resolved]

NARRATIVE: CASE EVENT DATE: 20171020
